FAERS Safety Report 17684265 (Version 1)
Quarter: 2020Q2

REPORT INFORMATION
  Report Type: Spontaneous
  Country: US (occurrence: US)
  Receive Date: 20200417
  Receipt Date: 20200417
  Transmission Date: 20200714
  Serious: Yes (Other)
  Sender: FDA-Public Use
  Company Number: None

PATIENT
  Age: 61 Year
  Sex: Female
  Weight: 69.3 kg

DRUGS (11)
  1. BENZTROPINE 1MG [Concomitant]
     Active Substance: BENZTROPINE
  2. FLUOXETINE 40MG [Concomitant]
     Active Substance: FLUOXETINE HYDROCHLORIDE
  3. MIRTAZAPINE 7.5MG [Concomitant]
     Active Substance: MIRTAZAPINE
  4. SEROQUEL 400MG [Concomitant]
  5. GABAPENTIN 300MG [Concomitant]
     Active Substance: GABAPENTIN
  6. ALPRAZOLAM 0.5MG [Concomitant]
     Active Substance: ALPRAZOLAM
  7. BACLOFEN 10MG [Concomitant]
     Active Substance: BACLOFEN
  8. AUSTEDO [Suspect]
     Active Substance: DEUTETRABENAZINE
     Indication: TARDIVE DYSKINESIA
     Route: 048
  9. SEROQUEL [Concomitant]
     Active Substance: QUETIAPINE FUMARATE
  10. LISINOPRIL. [Concomitant]
     Active Substance: LISINOPRIL
  11. PRAZOSIN 2MG [Concomitant]
     Active Substance: PRAZOSIN

REACTIONS (1)
  - Tremor [None]

NARRATIVE: CASE EVENT DATE: 20200417
